FAERS Safety Report 7684011-9 (Version None)
Quarter: 2011Q3

REPORT INFORMATION
  Report Type: 
  Country: None (occurrence: None)
  Receive Date: 20110815
  Receipt Date: 20110711
  Transmission Date: 20111222
  Serious: Yes (Hospitalization, Other)
  Sender: FDA-Public Use
  Company Number: HU-ABBOTT-11P-076-0729362-00

PATIENT
  Age: 76 Year
  Sex: Female
  Weight: 83 kg

DRUGS (1)
  1. ZEMPLAR [Suspect]
     Indication: DIABETIC END STAGE RENAL DISEASE
     Dosage: 35 MCG/DAILY SIS
     Route: 042
     Dates: start: 20110215

REACTIONS (5)
  - GASTRIC ULCER HAEMORRHAGE [None]
  - SACROILIITIS [None]
  - ANAEMIA [None]
  - DUODENAL ULCER HAEMORRHAGE [None]
  - PNEUMONIA [None]
